FAERS Safety Report 18981011 (Version 1)
Quarter: 2021Q1

REPORT INFORMATION
  Report Type: Spontaneous
  Country: US (occurrence: US)
  Receive Date: 20210305
  Receipt Date: 20210305
  Transmission Date: 20210420
  Serious: Yes (Hospitalization)
  Sender: FDA-Public Use
  Company Number: None

PATIENT
  Age: 79 Year
  Sex: Female

DRUGS (1)
  1. PALONOSETRON HYDROCHLORID 0.25 MG/5ML SANDOZ [Suspect]
     Active Substance: PALONOSETRON HYDROCHLORIDE
     Indication: GASTRIC CANCER
     Dosage: OTHER DOSE:0.25 MG/5ML ; EVERY 2 WEEKS INTRAVENOULY?
     Route: 042
     Dates: start: 20201223

REACTIONS (5)
  - Asthenia [None]
  - Dysstasia [None]
  - Peripheral swelling [None]
  - Dysphagia [None]
  - Therapy interrupted [None]

NARRATIVE: CASE EVENT DATE: 20210305
